FAERS Safety Report 6745079-7 (Version None)
Quarter: 2010Q2

REPORT INFORMATION
  Report Type: 
  Country: None (occurrence: None)
  Receive Date: 20100527
  Receipt Date: 20100521
  Transmission Date: 20101027
  Serious: Yes (Other)
  Sender: FDA-Public Use
  Company Number: US-MERCK-1005USA03128

PATIENT
  Age: 24 Month

DRUGS (1)
  1. SINGULAIR [Suspect]
     Indication: ASTHMA
     Route: 048
     Dates: start: 20100201, end: 20100327

REACTIONS (7)
  - AGGRESSION [None]
  - LOGORRHOEA [None]
  - MOOD SWINGS [None]
  - NIGHTMARE [None]
  - OFF LABEL USE [None]
  - PHYSICAL ASSAULT [None]
  - THINKING ABNORMAL [None]
